FAERS Safety Report 12917312 (Version 3)
Quarter: 2016Q4

REPORT INFORMATION
  Report Type: Spontaneous
  Country: JP (occurrence: JP)
  Receive Date: 20161107
  Receipt Date: 20161208
  Transmission Date: 20170207
  Serious: Yes (Death, Life-Threatening, Disabling)
  Sender: FDA-Public Use
  Company Number: JP-ROCHE-1851328

PATIENT
  Age: 71 Year
  Sex: Female
  Weight: 60 kg

DRUGS (9)
  1. LEVOFOLINATE [Concomitant]
     Active Substance: LEVOLEUCOVORIN CALCIUM
     Indication: COLON CANCER
     Dosage: DOSAGE IS UNCERTAIN.
     Route: 041
  2. DECADRON [Concomitant]
     Active Substance: DEXAMETHASONE
     Indication: COLON CANCER
     Route: 065
     Dates: start: 20161021, end: 20161021
  3. 5-FU [Suspect]
     Active Substance: FLUOROURACIL
     Dosage: DOSAGE IS UNCERTAIN.
     Route: 041
     Dates: start: 20161021, end: 20161023
  4. AVASTIN [Suspect]
     Active Substance: BEVACIZUMAB
     Indication: COLON CANCER
     Dosage: COMPLETED TREATMENT CYCLE NUMBER: 1
     Route: 041
     Dates: start: 20161021, end: 20161023
  5. CAMPTO [Concomitant]
     Active Substance: IRINOTECAN
     Indication: COLON CANCER
     Route: 041
     Dates: start: 20161021, end: 20161021
  6. KYTRIL [Concomitant]
     Active Substance: GRANISETRON HYDROCHLORIDE
     Indication: COLON CANCER
     Route: 065
     Dates: start: 20161021, end: 20161021
  7. ISOVORIN [Concomitant]
     Active Substance: LEUCOVORIN CALCIUM
     Indication: COLON CANCER
     Route: 041
     Dates: start: 20161021, end: 20161021
  8. 5-FU [Suspect]
     Active Substance: FLUOROURACIL
     Indication: COLON CANCER
     Dosage: DOSAGE IS UNCERTAIN.
     Route: 040
     Dates: start: 20161021, end: 20161021
  9. IRINOTECAN HYDROCHLORIDE TRIHYDRATE [Concomitant]
     Active Substance: IRINOTECAN HYDROCHLORIDE
     Indication: COLON CANCER
     Dosage: DOSAGE IS UNCERTAIN.
     Route: 041

REACTIONS (10)
  - Ventricular tachycardia [Fatal]
  - Acidosis [Recovered/Resolved with Sequelae]
  - Altered state of consciousness [Fatal]
  - Seizure [Fatal]
  - Hypoxic-ischaemic encephalopathy [Recovered/Resolved with Sequelae]
  - Hyperammonaemia [Recovered/Resolved with Sequelae]
  - Cardiac arrest [Fatal]
  - Arrhythmia [Fatal]
  - Hyperkalaemia [Recovered/Resolved with Sequelae]
  - Brain oedema [Recovered/Resolved with Sequelae]

NARRATIVE: CASE EVENT DATE: 20161021
